FAERS Safety Report 7860657-X (Version None)
Quarter: 2011Q4

REPORT INFORMATION
  Report Type: 
  Country: None (occurrence: None)
  Receive Date: 20111027
  Receipt Date: 20111013
  Transmission Date: 20120403
  Serious: Yes (Hospitalization)
  Sender: FDA-Public Use
  Company Number: GB-ARROW GEN-2011-16683

PATIENT
  Sex: Male

DRUGS (2)
  1. LISINOPRIL [Suspect]
     Indication: PRODUCT USED FOR UNKNOWN INDICATION
     Dosage: UNK
     Route: 048
  2. JANUVIA [Concomitant]
     Indication: DIABETES MELLITUS
     Dosage: 100 MG, DAILY
     Route: 048
     Dates: start: 20110101

REACTIONS (1)
  - NIPPLE PAIN [None]
